FAERS Safety Report 20412768 (Version 3)
Quarter: 2022Q2

REPORT INFORMATION
  Report Type: Report from Study
  Country: AU (occurrence: AU)
  Receive Date: 20220201
  Receipt Date: 20220531
  Transmission Date: 20220721
  Serious: Yes (Life-Threatening, Hospitalization, Other)
  Sender: FDA-Public Use
  Company Number: AU-PFIZER INC-202200157509

PATIENT
  Age: 72 Year
  Sex: Male
  Weight: 66 kg

DRUGS (12)
  1. PALBOCICLIB [Suspect]
     Active Substance: PALBOCICLIB
     Indication: Malignant neoplasm of ampulla of Vater
     Dosage: 125 MG
     Route: 048
     Dates: start: 20210803, end: 20220127
  2. AVELUMAB [Suspect]
     Active Substance: AVELUMAB
     Indication: Malignant neoplasm of ampulla of Vater
     Dosage: 683 MG
     Route: 042
     Dates: start: 20210831, end: 20220118
  3. ACETAMINOPHEN [Concomitant]
     Active Substance: ACETAMINOPHEN
     Indication: Pain
     Dosage: 1 G, FOUR TIMES A DAY
     Route: 048
     Dates: start: 20200101
  4. OXYCODONE [Concomitant]
     Active Substance: OXYCODONE
     Indication: Pain
     Dosage: 10 MG, QID PRN
     Route: 048
     Dates: start: 20200101
  5. UNSPECIFIED INGREDIENT [Concomitant]
     Active Substance: UNSPECIFIED INGREDIENT
     Indication: Pancreatic failure
     Dosage: 25000 UNITS, THREE TIMES A DAY
     Route: 048
     Dates: start: 20210601
  6. THIAMINE [Concomitant]
     Active Substance: THIAMINE
     Indication: Vitamin supplementation
     Dosage: 100 MG, ONCE A DAY
     Route: 048
     Dates: start: 20210623
  7. INSULIN GLARGINE [Concomitant]
     Active Substance: INSULIN GLARGINE
     Indication: Malignant neoplasm of ampulla of Vater
     Dosage: 10 UNITS, ONCE A DAY
     Route: 058
     Dates: start: 20210701
  8. FENTANYL [Concomitant]
     Active Substance: FENTANYL
     Indication: Pain
     Dosage: 50 UG EVERY THREE DAYS
     Route: 062
     Dates: start: 20210727
  9. FERRIC CARBOXYMALTOSE [Concomitant]
     Active Substance: FERRIC CARBOXYMALTOSE
     Dosage: 1000 MG, ONCE ONLY
     Route: 042
     Dates: start: 20220113, end: 20220113
  10. METOCLOPRAMIDE [Concomitant]
     Active Substance: METOCLOPRAMIDE
     Indication: Gastric disorder
     Dosage: 10 MG PRN
     Route: 048
     Dates: start: 20220118
  11. MIRTAZAPINE [Concomitant]
     Active Substance: MIRTAZAPINE
     Dosage: 15 MG NOCTE
     Route: 048
     Dates: start: 20220118
  12. SULFAMETHOXAZOLE AND TRIMETHOPRIM [Concomitant]
     Active Substance: SULFAMETHOXAZOLE\TRIMETHOPRIM
     Indication: Antibiotic prophylaxis
     Dosage: 1 TAB, TWICE A DAY
     Route: 048
     Dates: start: 20220120, end: 20220124

REACTIONS (1)
  - Drug-induced liver injury [Recovered/Resolved with Sequelae]

NARRATIVE: CASE EVENT DATE: 20220127
